FAERS Safety Report 6667024-5 (Version None)
Quarter: 2010Q2

REPORT INFORMATION
  Report Type: 
  Country: None (occurrence: None)
  Receive Date: 20100402
  Receipt Date: 20100402
  Transmission Date: 20101027
  Serious: Yes (Hospitalization)
  Sender: FDA-Public Use
  Company Number: None

PATIENT
  Age: 42 Year
  Sex: Female
  Weight: 67.6 kg

DRUGS (1)
  1. PREDNISONE [Suspect]
     Indication: ADRENAL INSUFFICIENCY
     Dosage: 15 MG EVERY DAY PO
     Route: 048
     Dates: start: 20081204

REACTIONS (6)
  - ADRENAL INSUFFICIENCY [None]
  - AGITATION [None]
  - ANXIETY [None]
  - DEPRESSION [None]
  - HALLUCINATIONS, MIXED [None]
  - OBSESSIVE-COMPULSIVE DISORDER [None]
